FAERS Safety Report 24607964 (Version 1)
Quarter: 2024Q4

REPORT INFORMATION
  Report Type: Spontaneous
  Country: US (occurrence: US)
  Receive Date: 20241112
  Receipt Date: 20241112
  Transmission Date: 20250115
  Serious: No
  Sender: ABBVIE
  Company Number: US-ABBVIE-5994990

PATIENT
  Age: 24 Year
  Sex: Female
  Weight: 91 kg

DRUGS (12)
  1. DIVALPROEX SODIUM [Suspect]
     Active Substance: DIVALPROEX SODIUM
     Indication: Seizure prophylaxis
     Dosage: FORM STRENGTH: 750 MILLIGRAM?FREQUENCY TEXT: DAILY
     Route: 048
     Dates: start: 2009, end: 2009
  2. DIVALPROEX SODIUM [Suspect]
     Active Substance: DIVALPROEX SODIUM
     Indication: Seizure prophylaxis
     Dosage: FREQUENCY TEXT: DAILY
     Route: 048
     Dates: start: 2009, end: 2009
  3. ADDERALL [Concomitant]
     Active Substance: AMPHETAMINE ASPARTATE\AMPHETAMINE SULFATE\DEXTROAMPHETAMINE SACCHARATE\DEXTROAMPHETAMINE SULFATE
     Indication: Anxiety
  4. GABAPENTIN AN [Concomitant]
     Indication: Anxiety
  5. TRAZODONE [Concomitant]
     Active Substance: TRAZODONE HYDROCHLORIDE
     Indication: Sleep disorder
  6. ALBUTEROL [Concomitant]
     Active Substance: ALBUTEROL
     Indication: Multiple allergies
  7. PROPRANOLOL [Concomitant]
     Active Substance: PROPRANOLOL HYDROCHLORIDE
     Indication: Heart rate increased
     Dosage: FORM STRENGTH: 10 MILLIGRAM
  8. PROZAC [Concomitant]
     Active Substance: FLUOXETINE HYDROCHLORIDE
     Indication: Depression
  9. Ketoconazole bp [Concomitant]
     Indication: Product used for unknown indication
  10. LOPERAMIDE [Concomitant]
     Active Substance: LOPERAMIDE
     Indication: Diarrhoea
     Dosage: FREQUENCY TEXT: AS NEEDED
  11. FLUTICASONE [Concomitant]
     Active Substance: FLUTICASONE
     Indication: Multiple allergies
  12. RANITIDINE [Concomitant]
     Active Substance: RANITIDINE
     Indication: Gastritis

REACTIONS (4)
  - Urticaria [Recovered/Resolved]
  - Pruritus [Recovered/Resolved]
  - Hypersensitivity [Recovered/Resolved]
  - Anticonvulsant drug level below therapeutic [Not Recovered/Not Resolved]

NARRATIVE: CASE EVENT DATE: 20090101
